FAERS Safety Report 21121401 (Version 4)
Quarter: 2022Q3

REPORT INFORMATION
  Report Type: Spontaneous
  Country: FR (occurrence: FR)
  Receive Date: 20220722
  Receipt Date: 20220908
  Transmission Date: 20221027
  Serious: Yes (Hospitalization)
  Sender: FDA-Public Use
  Company Number: None

PATIENT
  Age: 57 Year
  Sex: Female

DRUGS (17)
  1. LANSOPRAZOLE [Suspect]
     Active Substance: LANSOPRAZOLE
     Indication: Prophylaxis
     Route: 065
     Dates: start: 202202
  2. PAMIDRONATE DISODIUM [Suspect]
     Active Substance: PAMIDRONATE DISODIUM
     Indication: Osteoporosis
     Dosage: MOST RECENT DOSE PRIOR TO AE /JAN/2022
     Route: 065
     Dates: start: 202201, end: 202201
  3. CELLCEPT [Suspect]
     Active Substance: MYCOPHENOLATE MOFETIL
     Indication: Prophylaxis against transplant rejection
     Route: 065
     Dates: start: 201301
  4. BACTRIM [Suspect]
     Active Substance: SULFAMETHOXAZOLE\TRIMETHOPRIM
     Indication: Opportunistic infection prophylaxis
     Route: 065
     Dates: start: 20220118
  5. WARFARIN SODIUM [Suspect]
     Active Substance: WARFARIN SODIUM
     Indication: Phlebitis
     Route: 065
     Dates: start: 202202, end: 20220627
  6. WARFARIN SODIUM [Suspect]
     Active Substance: WARFARIN SODIUM
     Route: 065
     Dates: start: 202203
  7. NEORAL [Suspect]
     Active Substance: CYCLOSPORINE
     Indication: Prophylaxis against transplant rejection
     Route: 065
     Dates: start: 2008
  8. VALGANCICLOVIR [Suspect]
     Active Substance: VALGANCICLOVIR
     Indication: Antiviral treatment
     Route: 065
     Dates: start: 20220223, end: 20220624
  9. PREDNISONE [Suspect]
     Active Substance: PREDNISONE
     Indication: Hypercalcaemia
     Route: 065
     Dates: start: 202201
  10. NEBIVOLOL [Concomitant]
     Active Substance: NEBIVOLOL
     Dates: start: 2008
  11. FUROSEMIDE [Concomitant]
     Active Substance: FUROSEMIDE
     Dates: start: 2012
  12. FEBUXOSTAT [Concomitant]
     Active Substance: FEBUXOSTAT
     Dates: start: 2013
  13. POLYETHYLENE GLYCOLS [Concomitant]
     Active Substance: POLYETHYLENE GLYCOLS
  14. PRAVASTATIN SODIUM [Concomitant]
     Active Substance: PRAVASTATIN SODIUM
     Dates: start: 2008
  15. FOLIC ACID [Concomitant]
     Active Substance: FOLIC ACID
     Dates: start: 202201
  16. RAMIPRIL [Concomitant]
     Active Substance: RAMIPRIL
     Dates: start: 2021
  17. CALCIUM PHOSPHATE, DIBASIC, ANHYDROUS\MAGNESIUM GLYCEROPHOSPHATE\PHOSP [Concomitant]
     Active Substance: CALCIUM PHOSPHATE, DIBASIC, ANHYDROUS\MAGNESIUM GLYCEROPHOSPHATE\PHOSPHORIC ACID\SODIUM PHOSPHATE, D

REACTIONS (1)
  - Anaemia macrocytic [Recovering/Resolving]

NARRATIVE: CASE EVENT DATE: 20220425
